FAERS Safety Report 19157756 (Version 2)
Quarter: 2021Q2

REPORT INFORMATION
  Report Type: Spontaneous
  Country: US (occurrence: US)
  Receive Date: 20210420
  Receipt Date: 20210420
  Transmission Date: 20210717
  Serious: No
  Sender: FDA-Public Use
  Company Number: US-ALLERGAN-2030281US

PATIENT
  Age: 61 Year
  Sex: Female
  Weight: 67.13 kg

DRUGS (2)
  1. RISEDRONATE SODIUM ? BP [Suspect]
     Active Substance: RISEDRONATE SODIUM
     Indication: OSTEOPOROSIS
     Dosage: 35 MG, Q WEEK
     Route: 048
     Dates: start: 20200807
  2. RISEDRONATE SODIUM ? BP [Suspect]
     Active Substance: RISEDRONATE SODIUM
     Indication: OSTEOPENIA

REACTIONS (4)
  - Abdominal discomfort [Unknown]
  - Abdominal pain upper [Not Recovered/Not Resolved]
  - Diarrhoea [Not Recovered/Not Resolved]
  - Nausea [Not Recovered/Not Resolved]

NARRATIVE: CASE EVENT DATE: 20200807
